FAERS Safety Report 7543331-9 (Version None)
Quarter: 2011Q2

REPORT INFORMATION
  Report Type: 
  Country: None (occurrence: None)
  Receive Date: 20110524
  Receipt Date: 20110404
  Transmission Date: 20111010
  Serious: No
  Sender: FDA-Public Use
  Company Number: 021836

PATIENT
  Sex: Female

DRUGS (4)
  1. CIMZIA [Suspect]
  2. CIMZIA [Suspect]
  3. CIMZIA [Suspect]
     Indication: CROHN'S DISEASE
     Dosage: SUBCUTANEOUS, SUBCUTANEOUS, 200 MG 1X/2 WEEKS SUBCUTANEOUS
     Route: 058
     Dates: start: 20090330
  4. CIMZIA [Suspect]
     Indication: CROHN'S DISEASE
     Dosage: SUBCUTANEOUS, SUBCUTANEOUS, 200 MG 1X/2 WEEKS SUBCUTANEOUS
     Route: 058
     Dates: start: 20110330

REACTIONS (5)
  - INJECTION SITE PAIN [None]
  - EAR INFECTION [None]
  - CONSTIPATION [None]
  - BODY TEMPERATURE INCREASED [None]
  - DIARRHOEA [None]
